FAERS Safety Report 12072953 (Version 1)
Quarter: 2016Q1

REPORT INFORMATION
  Report Type: Spontaneous
  Country: FI (occurrence: FI)
  Receive Date: 20160212
  Receipt Date: 20160212
  Transmission Date: 20160526
  Serious: Yes (Other)
  Sender: FDA-Public Use
  Company Number: FI-BAYER-2015-480678

PATIENT
  Age: 25 Year
  Sex: Female

DRUGS (1)
  1. QLAIRA [Suspect]
     Active Substance: DIENOGEST\ESTRADIOL VALERATE
     Dosage: UNK
     Route: 048
     Dates: start: 201403, end: 201511

REACTIONS (4)
  - Abortion spontaneous [None]
  - Nausea [None]
  - Pregnancy on oral contraceptive [None]
  - Drug ineffective [None]

NARRATIVE: CASE EVENT DATE: 201509
